FAERS Safety Report 6855180-5 (Version None)
Quarter: 2010Q3

REPORT INFORMATION
  Report Type: 
  Country: None (occurrence: None)
  Receive Date: 20100717
  Receipt Date: 20100216
  Transmission Date: 20110219
  Serious: No
  Sender: FDA-Public Use
  Company Number: US-PFIZER INC-2007102339

PATIENT
  Sex: Female
  Weight: 54.5 kg

DRUGS (4)
  1. CHANTIX [Suspect]
     Dosage: 0.5 MG, 1X/DAY
     Route: 048
     Dates: start: 20071109
  2. XANAX [Concomitant]
     Route: 048
  3. DALMANE [Concomitant]
     Route: 048
  4. VALSARTAN [Concomitant]
     Route: 048

REACTIONS (9)
  - ABNORMAL DREAMS [None]
  - ANXIETY [None]
  - CONSTIPATION [None]
  - DEPRESSION [None]
  - INSOMNIA [None]
  - MENSTRUAL DISORDER [None]
  - MUSCLE SPASMS [None]
  - NAUSEA [None]
  - STRESS [None]
